FAERS Safety Report 5069658-0 (Version None)
Quarter: 2006Q3

REPORT INFORMATION
  Report Type: 
  Country: None (occurrence: None)
  Receive Date: 20060803
  Receipt Date: 20060727
  Transmission Date: 20061208
  Serious: Yes (Other)
  Sender: FDA-Public Use
  Company Number: 2006UW15209

PATIENT
  Age: 60 Year
  Sex: Female
  Weight: 60.8 kg

DRUGS (3)
  1. ARIMIDEX [Suspect]
     Indication: BREAST CANCER FEMALE
     Route: 048
     Dates: start: 20050801
  2. EFFEXOR [Concomitant]
  3. FOLIC ACID [Concomitant]

REACTIONS (4)
  - ARTHRALGIA [None]
  - HYPERHIDROSIS [None]
  - JOINT EFFUSION [None]
  - JOINT SWELLING [None]
